FAERS Safety Report 19877814 (Version 1)
Quarter: 2021Q3

REPORT INFORMATION
  Report Type: Spontaneous
  Country: US (occurrence: US)
  Receive Date: 20210923
  Receipt Date: 20210923
  Transmission Date: 20211014
  Serious: Yes (Other)
  Sender: FDA-Public Use
  Company Number: None

PATIENT
  Age: 80 Year
  Sex: Female
  Weight: 72 kg

DRUGS (10)
  1. VIT D [Concomitant]
     Active Substance: VITAMIN D NOS
  2. RETAINE [Concomitant]
     Active Substance: HYPROMELLOSE 2910 (4000 MPA.S)
  3. HYDRXYQHLOROQUINE [Concomitant]
  4. LEVOXYL [Concomitant]
     Active Substance: LEVOTHYROXINE SODIUM
  5. MURO 128 [Concomitant]
     Active Substance: SODIUM CHLORIDE
  6. PROTONIX [Concomitant]
     Active Substance: PANTOPRAZOLE SODIUM
  7. CENTRUM  SILVER [Concomitant]
     Active Substance: MINERALS\VITAMINS
  8. CYCLOSPORINE 1% [Suspect]
     Active Substance: CYCLOSPORINE
     Indication: SJOGREN^S SYNDROME
     Dosage: QUANTITY:5.5 DROP(S);?
     Route: 047
     Dates: start: 20210715
  9. GABAPENTIN. [Concomitant]
     Active Substance: GABAPENTIN
  10. BACLOFEN. [Concomitant]
     Active Substance: BACLOFEN

REACTIONS (3)
  - Pain [None]
  - Eyelid pain [None]
  - Eye irritation [None]

NARRATIVE: CASE EVENT DATE: 20210920
